FAERS Safety Report 18437189 (Version 1)
Quarter: 2020Q4

REPORT INFORMATION
  Report Type: Other
  Country: US (occurrence: US)
  Receive Date: 20201028
  Receipt Date: 20201028
  Transmission Date: 20210114
  Serious: No
  Sender: FDA-Public Use
  Company Number: US-ROCHE-2637844

PATIENT
  Sex: Female

DRUGS (1)
  1. OCREVUS [Suspect]
     Active Substance: OCRELIZUMAB
     Indication: MULTIPLE SCLEROSIS
     Dosage: 300 MG ONCE IN 15 DAYS AND 600 MG ONCE IN 6 MONTHS.?DATES OF TREATMENT: 27/JAN/2020, 23/MAR/2020
     Route: 042
     Dates: start: 20190829

REACTIONS (7)
  - Alopecia [Unknown]
  - Pain [Not Recovered/Not Resolved]
  - Muscle spasms [Not Recovered/Not Resolved]
  - Breast mass [Unknown]
  - Papilloma viral infection [Unknown]
  - Dry skin [Unknown]
  - Skin exfoliation [Unknown]
